FAERS Safety Report 25189429 (Version 1)
Quarter: 2025Q2

REPORT INFORMATION
  Report Type: Spontaneous
  Country: US (occurrence: US)
  Receive Date: 20250411
  Receipt Date: 20250411
  Transmission Date: 20250716
  Serious: Yes (Life-Threatening, Hospitalization)
  Sender: MYLAN
  Company Number: US-MYLANLABS-2025M1031082

PATIENT
  Age: 79 Year
  Sex: Female

DRUGS (4)
  1. MYCOPHENOLATE MOFETIL [Suspect]
     Active Substance: MYCOPHENOLATE MOFETIL
     Indication: Immunosuppressant drug therapy
  2. Immunoglobulin [Concomitant]
     Indication: Myocarditis
  3. Immunoglobulin [Concomitant]
     Indication: Myositis
  4. Immunoglobulin [Concomitant]
     Indication: Myasthenia gravis

REACTIONS (1)
  - Drug ineffective [Unknown]
